FAERS Safety Report 4310895-8 (Version None)
Quarter: 2004Q1

REPORT INFORMATION
  Report Type: 
  Country: None (occurrence: None)
  Receive Date: 20040303
  Receipt Date: 20040301
  Transmission Date: 20041129
  Serious: Yes (Other)
  Sender: FDA-Public Use
  Company Number: 04-03-0313

PATIENT
  Age: 64 Year
  Sex: Female

DRUGS (1)
  1. CLOZAPINE [Suspect]
     Dosage: 325-750MG QD ORAL
     Route: 048
     Dates: start: 19980301

REACTIONS (1)
  - LUNG NEOPLASM MALIGNANT [None]
